FAERS Safety Report 7398176-X (Version None)
Quarter: 2011Q2

REPORT INFORMATION
  Report Type: 
  Country: None (occurrence: None)
  Receive Date: 20110406
  Receipt Date: 20110324
  Transmission Date: 20111010
  Serious: Yes (Hospitalization)
  Sender: FDA-Public Use
  Company Number: PHHY2011US24247

PATIENT
  Sex: Male
  Weight: 59 kg

DRUGS (2)
  1. EXJADE [Suspect]
     Indication: SICKLE CELL ANAEMIA
     Dosage: 1000 MG  DAILY
     Route: 048
     Dates: start: 20060508, end: 20101230
  2. TRANSFUSIONS [Concomitant]

REACTIONS (7)
  - HAEMOLYSIS [None]
  - SICKLE CELL ANAEMIA WITH CRISIS [None]
  - CHEST PAIN [None]
  - PAIN [None]
  - ABDOMINAL PAIN [None]
  - BLOOD BILIRUBIN INCREASED [None]
  - ARTHRALGIA [None]
